FAERS Safety Report 17845896 (Version 1)
Quarter: 2020Q2

REPORT INFORMATION
  Report Type: Spontaneous
  Country: US (occurrence: US)
  Receive Date: 20200530
  Receipt Date: 20200530
  Transmission Date: 20200714
  Serious: Yes (Disabling, Other)
  Sender: FDA-Public Use
  Company Number: None

PATIENT
  Age: 54 Year
  Sex: Female
  Weight: 72 kg

DRUGS (3)
  1. LEVOTHYROXINE. [Concomitant]
     Active Substance: LEVOTHYROXINE
  2. VITAMIN C [Concomitant]
     Active Substance: ASCORBIC ACID
  3. NP THYROID [Suspect]
     Active Substance: LEVOTHYROXINE\LIOTHYRONINE
     Indication: AUTOIMMUNE THYROIDITIS
     Route: 048
     Dates: start: 20170601, end: 20200412

REACTIONS (11)
  - Loss of personal independence in daily activities [None]
  - Overdose [None]
  - Temperature intolerance [None]
  - Loss of employment [None]
  - Fatigue [None]
  - Disturbance in attention [None]
  - Cognitive disorder [None]
  - Anxiety [None]
  - Weight decreased [None]
  - Muscular weakness [None]
  - Sleep disorder [None]

NARRATIVE: CASE EVENT DATE: 20200408
